FAERS Safety Report 13405108 (Version 5)
Quarter: 2017Q2

REPORT INFORMATION
  Report Type: Report from Study
  Country: US (occurrence: US)
  Receive Date: 20170405
  Receipt Date: 20170531
  Transmission Date: 20170830
  Serious: Yes (Death, Life-Threatening, Hospitalization, Other)
  Sender: FDA-Public Use
  Company Number: US-GILEAD-2017-0264589

PATIENT
  Age: 71 Year
  Sex: Female

DRUGS (7)
  1. ADEMPAS [Concomitant]
     Active Substance: RIOCIGUAT
  2. AMIODARONE [Concomitant]
     Active Substance: AMIODARONE
  3. AMBRISENTAN [Suspect]
     Active Substance: AMBRISENTAN
     Indication: PULMONARY HYPERTENSION
     Dosage: 5 MG, QD
     Route: 048
     Dates: start: 20170213
  4. AMBRISENTAN [Suspect]
     Active Substance: AMBRISENTAN
     Indication: PULMONARY ARTERIAL HYPERTENSION
  5. ASPIRIN                            /00002701/ [Concomitant]
     Active Substance: ASPIRIN
  6. ELIQUIS [Concomitant]
     Active Substance: APIXABAN
  7. REMODULIN [Concomitant]
     Active Substance: TREPROSTINIL

REACTIONS (5)
  - White blood cell count increased [Unknown]
  - Sepsis [Fatal]
  - Acute respiratory failure [Unknown]
  - Shock [Unknown]
  - Pneumonia [Fatal]

NARRATIVE: CASE EVENT DATE: 20170327
